FAERS Safety Report 5755216-9 (Version None)
Quarter: 2008Q2

REPORT INFORMATION
  Report Type: 
  Country: None (occurrence: None)
  Receive Date: 20080602
  Receipt Date: 20080522
  Transmission Date: 20081010
  Serious: Yes (Other)
  Sender: FDA-Public Use
  Company Number: US-JNJFOC-20080504899

PATIENT
  Sex: Female
  Weight: 84.82 kg

DRUGS (11)
  1. REMICADE [Suspect]
     Route: 042
  2. REMICADE [Suspect]
     Route: 042
  3. REMICADE [Suspect]
     Indication: CROHN'S DISEASE
     Route: 042
  4. PREDNISONE TAB [Concomitant]
     Indication: CROHN'S DISEASE
  5. AMBIEN [Concomitant]
     Indication: SLEEP DISORDER
  6. NEXIUM [Concomitant]
     Indication: GASTROOESOPHAGEAL REFLUX DISEASE
  7. HYDROCHLOROTHIAZIDE [Concomitant]
  8. CALCIUM [Concomitant]
  9. CLARITIN [Concomitant]
     Indication: PREMEDICATION
  10. TYLENOL [Concomitant]
     Indication: PREMEDICATION
  11. VITAMINS [Concomitant]

REACTIONS (1)
  - PARAESTHESIA [None]
